FAERS Safety Report 5030086-5 (Version None)
Quarter: 2006Q2

REPORT INFORMATION
  Report Type: 
  Country: None (occurrence: None)
  Receive Date: 20060620
  Receipt Date: 20060609
  Transmission Date: 20061013
  Serious: Yes (Hospitalization)
  Sender: FDA-Public Use
  Company Number: SE-JNJFOC-20060603522

PATIENT
  Age: 50 Year
  Sex: Female

DRUGS (12)
  1. REMICADE [Suspect]
     Indication: RHEUMATOID ARTHRITIS
     Route: 042
  2. ENBREL [Suspect]
     Indication: RHEUMATOID ARTHRITIS
     Route: 058
  3. KINERET [Suspect]
     Indication: RHEUMATOID ARTHRITIS
     Route: 058
  4. HUMIRA [Suspect]
     Indication: RHEUMATOID ARTHRITIS
     Route: 058
  5. LANSOPRAZOLE [Concomitant]
     Route: 065
  6. OPTINATE SEPTIMUM [Concomitant]
     Route: 065
  7. FOLACIN [Concomitant]
     Route: 065
  8. FOLACIN [Concomitant]
     Route: 065
  9. BEHEPAN [Concomitant]
     Route: 065
  10. PREDNISOLONE [Concomitant]
     Route: 065
  11. ORUDIS RETARD [Concomitant]
     Route: 065
  12. CALCICHEW D3 [Concomitant]
     Route: 065

REACTIONS (2)
  - FALLOPIAN TUBE CANCER [None]
  - HYPERSENSITIVITY [None]
